FAERS Safety Report 4660157-4 (Version None)
Quarter: 2005Q2

REPORT INFORMATION
  Report Type: 
  Country: None (occurrence: None)
  Receive Date: 20050419
  Receipt Date: 20041020
  Transmission Date: 20051028
  Serious: Yes (Hospitalization, Disabling)
  Sender: FDA-Public Use
  Company Number: 20041000451

PATIENT
  Age: 64 Year
  Sex: Female

DRUGS (13)
  1. HEPARIN [Suspect]
     Indication: THROMBOSIS PROPHYLAXIS
     Dates: start: 20030719, end: 20030808
  2. BENADRYL [Concomitant]
  3. INTRALIPID 20% [Concomitant]
  4. TRAVASOL (AMINO ACIDS) [Concomitant]
  5. INSULINE TORONTO [Concomitant]
  6. URSODIOL [Concomitant]
  7. SYNTHROID [Concomitant]
  8. SODIUM CHLORIDE [Concomitant]
  9. EFFEXOR [Concomitant]
  10. PREDNISONE [Concomitant]
  11. ZOFRAN [Concomitant]
  12. PACLITAXEL [Concomitant]
  13. CARBOPLATIN [Concomitant]

REACTIONS (1)
  - HAEMORRHAGIC STROKE [None]
